FAERS Safety Report 9686222 (Version 1)
Quarter: 2013Q4

REPORT INFORMATION
  Report Type: Spontaneous
  Country: IR (occurrence: IR)
  Receive Date: 20131113
  Receipt Date: 20131113
  Transmission Date: 20140711
  Serious: Yes (Other)
  Sender: FDA-Public Use
  Company Number: PHHY2013IR127991

PATIENT
  Age: 15 Year
  Sex: Male

DRUGS (4)
  1. TRIAMHEXAL [Suspect]
     Dosage: 0.5 ML, UNK
  2. PREDNISOLONE FORT [Concomitant]
     Dosage: 75 MG, DAILY
     Route: 048
  3. BETAMETHASONE [Concomitant]
     Route: 061
  4. CHOLOBIOTIC [Concomitant]

REACTIONS (9)
  - Conjunctival ulcer [Recovered/Resolved with Sequelae]
  - Eye pain [Recovered/Resolved]
  - Conjunctivitis [Recovered/Resolved]
  - Necrotising scleritis [Recovered/Resolved]
  - Scleritis [Recovered/Resolved]
  - Conjunctival vascular disorder [Recovered/Resolved]
  - Extravasation [Unknown]
  - Scleral thinning [Unknown]
  - Staphylococcal infection [Unknown]
